FAERS Safety Report 19196781 (Version 1)
Quarter: 2021Q2

REPORT INFORMATION
  Report Type: Spontaneous
  Country: US (occurrence: US)
  Receive Date: 20210429
  Receipt Date: 20210429
  Transmission Date: 20210717
  Serious: Yes (Other)
  Sender: FDA-Public Use
  Company Number: US-AMGEN-USASP2021062574

PATIENT
  Sex: Female

DRUGS (3)
  1. BEVACIZUMAB. [Suspect]
     Active Substance: BEVACIZUMAB
     Indication: NON-SMALL CELL LUNG CANCER RECURRENT
     Dosage: UNK
     Route: 065
  2. CERITINIB [Suspect]
     Active Substance: CERITINIB
     Indication: NON-SMALL CELL LUNG CANCER RECURRENT
     Dosage: 600 MILLIGRAM, QD
     Route: 065
  3. CERITINIB [Suspect]
     Active Substance: CERITINIB
     Dosage: 300 MILLIGRAM, QD
     Route: 065

REACTIONS (4)
  - Aspergillus infection [Recovered/Resolved]
  - Abdominal discomfort [Unknown]
  - Lung cancer metastatic [Recovered/Resolved]
  - Metastases to meninges [Unknown]
